FAERS Safety Report 6143460-0 (Version None)
Quarter: 2009Q2

REPORT INFORMATION
  Report Type: 
  Country: None (occurrence: None)
  Receive Date: 20090403
  Receipt Date: 20090325
  Transmission Date: 20091009
  Serious: Yes (Other)
  Sender: FDA-Public Use
  Company Number: PHHY2009GT11038

PATIENT
  Sex: Male

DRUGS (7)
  1. DIOVAN HCT [Suspect]
     Indication: HYPERTENSION
     Dosage: 160/12.5MG PER DAY
     Route: 048
     Dates: start: 20070404
  2. TERLOC [Concomitant]
     Dosage: HALF A TABLET PER DAY
     Route: 048
  3. HYPERLIPEN [Concomitant]
     Dosage: 100MG PER DAY
     Route: 048
  4. DIGOXIN [Concomitant]
     Dosage: 0.125MG PER DAY
     Route: 048
  5. ASPIRIN [Concomitant]
     Dosage: 1 TABLET PER DAY
     Route: 048
  6. RANITIDINE HCL [Concomitant]
     Dosage: 300MG PER DAY
     Route: 048
  7. PSYLLIUM [Concomitant]

REACTIONS (4)
  - DYSPHONIA [None]
  - NECK MASS [None]
  - PROSTATIC SPECIFIC ANTIGEN INCREASED [None]
  - WEIGHT DECREASED [None]
